FAERS Safety Report 7254445-5 (Version None)
Quarter: 2011Q1

REPORT INFORMATION
  Report Type: 
  Country: None (occurrence: None)
  Receive Date: 20110129
  Receipt Date: 20100420
  Transmission Date: 20110831
  Serious: No
  Sender: FDA-Public Use
  Company Number: US-ABBOTT-10P-163-0640529-00

PATIENT
  Sex: Female
  Weight: 72.64 kg

DRUGS (13)
  1. HUMIRA [Suspect]
     Indication: RHEUMATOID ARTHRITIS
     Route: 058
     Dates: start: 20100415
  2. RESTORIL [Concomitant]
     Indication: INSOMNIA
     Dosage: DAILY AT BEDTIME
     Route: 048
  3. ASPIRIN [Concomitant]
     Indication: CARDIAC DISORDER
     Route: 048
  4. FOLIC ACID [Concomitant]
     Indication: VITAMIN SUPPLEMENTATION
     Route: 048
  5. FOLIC ACID [Concomitant]
  6. PLAQUENIL [Concomitant]
     Indication: PRODUCT USED FOR UNKNOWN INDICATION
     Route: 048
  7. METHOTREXATE [Concomitant]
     Indication: PRODUCT USED FOR UNKNOWN INDICATION
     Route: 048
  8. RESTORIL [Concomitant]
     Indication: FIBROMYALGIA
  9. HUMIRA [Suspect]
     Route: 058
     Dates: start: 20091201, end: 20100415
  10. FISH OIL [Concomitant]
     Indication: VITAMIN SUPPLEMENTATION
     Route: 048
  11. VITAMIN D [Concomitant]
     Indication: VITAMIN SUPPLEMENTATION
     Route: 048
  12. MULTI-VITAMIN [Concomitant]
     Indication: SUPPLEMENTATION THERAPY
     Route: 048
  13. ADVIL [Concomitant]
     Indication: ARTHRALGIA
     Route: 048

REACTIONS (1)
  - BREAKTHROUGH PAIN [None]
